FAERS Safety Report 7237933-7 (Version None)
Quarter: 2011Q1

REPORT INFORMATION
  Report Type: 
  Country: None (occurrence: None)
  Receive Date: 20110121
  Receipt Date: 20110110
  Transmission Date: 20110831
  Serious: Yes (Hospitalization)
  Sender: FDA-Public Use
  Company Number: BR-ELI_LILLY_AND_COMPANY-BR201010006888

PATIENT
  Sex: Male
  Weight: 71 kg

DRUGS (1)
  1. ZYPREXA [Suspect]
     Indication: SCHIZOPHRENIA
     Dosage: 10 MG, EACH EVENING
     Route: 048
     Dates: start: 20100801

REACTIONS (3)
  - CONVULSION [None]
  - SYNCOPE [None]
  - FALL [None]
